FAERS Safety Report 7283998-6 (Version None)
Quarter: 2011Q1

REPORT INFORMATION
  Report Type: 
  Country: None (occurrence: None)
  Receive Date: 20110209
  Receipt Date: 20110131
  Transmission Date: 20110831
  Serious: Yes (Hospitalization, Disabling)
  Sender: FDA-Public Use
  Company Number: BR-ASTRAZENECA-2011SE05493

PATIENT
  Age: 70 Year
  Sex: Male

DRUGS (10)
  1. SEROQUEL [Suspect]
     Route: 048
     Dates: start: 20080101
  2. ARADOIS [Concomitant]
     Route: 048
  3. NEXIUM [Suspect]
     Indication: GASTRITIS
     Route: 048
     Dates: start: 20060101
  4. SEROQUEL [Suspect]
     Indication: BIPOLAR DISORDER
     Route: 048
  5. SEROQUEL [Suspect]
     Route: 048
     Dates: start: 20080101
  6. TRILEPTAL [Concomitant]
     Route: 048
  7. OLEPTAL [Concomitant]
     Route: 048
  8. SEROQUEL [Suspect]
     Indication: DEPRESSION
     Route: 048
  9. CRESTOR [Suspect]
     Indication: HYPOCHOLESTEROLAEMIA
     Route: 048
     Dates: start: 20080101
  10. BENICAR [Concomitant]
     Route: 048

REACTIONS (5)
  - GAIT DISTURBANCE [None]
  - SYMPHYSIOLYSIS [None]
  - BLOOD CHOLESTEROL INCREASED [None]
  - WALKING AID USER [None]
  - FALL [None]
